FAERS Safety Report 24539694 (Version 1)
Quarter: 2024Q4

REPORT INFORMATION
  Report Type: Spontaneous
  Country: US (occurrence: None)
  Receive Date: 20241022
  Receipt Date: 20241022
  Transmission Date: 20250115
  Serious: Yes (Hospitalization)
  Sender: Public
  Company Number: None

PATIENT
  Age: 64 Year
  Sex: Male

DRUGS (1)
  1. ESCITALOPRAM OXALATE [Suspect]
     Active Substance: ESCITALOPRAM OXALATE
     Indication: Hyperlipidaemia
     Route: 048
     Dates: start: 20240408, end: 20240418

REACTIONS (2)
  - Seizure [None]
  - Dyskinesia [None]

NARRATIVE: CASE EVENT DATE: 20240418
